FAERS Safety Report 5637414-8 (Version None)
Quarter: 2008Q1

REPORT INFORMATION
  Report Type: 
  Country: None (occurrence: None)
  Receive Date: 20080225
  Receipt Date: 20080213
  Transmission Date: 20080703
  Serious: Yes (Other)
  Sender: FDA-Public Use
  Company Number: US-PFIZER INC-2008014281

PATIENT
  Sex: Female
  Weight: 72.727 kg

DRUGS (4)
  1. DILANTIN [Suspect]
     Indication: CONVULSION
  2. DILANTIN [Suspect]
     Indication: CONVULSION
     Dates: end: 20080213
  3. NEXIUM [Concomitant]
  4. MONTELUKAST SODIUM [Concomitant]

REACTIONS (3)
  - ANTICONVULSANT DRUG LEVEL ABOVE THERAPEUTIC [None]
  - EMOTIONAL DISTRESS [None]
  - FEELING ABNORMAL [None]
